FAERS Safety Report 19035557 (Version 20)
Quarter: 2024Q2

REPORT INFORMATION
  Report Type: Report from Study
  Country: CO (occurrence: CO)
  Receive Date: 20210320
  Receipt Date: 20240430
  Transmission Date: 20240716
  Serious: Yes (Other)
  Sender: FDA-Public Use
  Company Number: CO-TAKEDA-CO202000646

PATIENT
  Age: 32 Year
  Sex: Female
  Weight: 57 kg

DRUGS (19)
  1. ICATIBANT [Suspect]
     Active Substance: ICATIBANT ACETATE
     Indication: Hereditary angioedema
     Dosage: 30 MILLIGRAM, Q6HR
     Route: 058
     Dates: start: 20160524
  2. ICATIBANT [Suspect]
     Active Substance: ICATIBANT ACETATE
     Indication: Hereditary angioedema
     Dosage: 30 MILLIGRAM, Q6HR
     Route: 058
     Dates: start: 20160524
  3. ICATIBANT [Suspect]
     Active Substance: ICATIBANT ACETATE
     Dosage: 30 MILLIGRAM
     Route: 058
     Dates: start: 20200730
  4. ICATIBANT [Suspect]
     Active Substance: ICATIBANT ACETATE
     Dosage: 30 MILLIGRAM
     Route: 058
     Dates: start: 20200730
  5. ICATIBANT [Suspect]
     Active Substance: ICATIBANT ACETATE
     Dosage: 30 MILLIGRAM
     Route: 058
     Dates: start: 20200910
  6. ICATIBANT [Suspect]
     Active Substance: ICATIBANT ACETATE
     Dosage: 30 MILLIGRAM
     Route: 058
     Dates: start: 20200910
  7. ICATIBANT [Suspect]
     Active Substance: ICATIBANT ACETATE
     Dosage: 30 MILLIGRAM
     Route: 058
     Dates: start: 20200914
  8. ICATIBANT [Suspect]
     Active Substance: ICATIBANT ACETATE
     Dosage: 30 MILLIGRAM
     Route: 058
     Dates: start: 20200914
  9. ICATIBANT [Suspect]
     Active Substance: ICATIBANT ACETATE
     Dosage: 1 DOSAGE FORM
     Route: 058
     Dates: start: 20211120
  10. ICATIBANT [Suspect]
     Active Substance: ICATIBANT ACETATE
     Dosage: 1 DOSAGE FORM
     Route: 058
     Dates: start: 20211120
  11. ICATIBANT [Suspect]
     Active Substance: ICATIBANT ACETATE
     Dosage: 1 DOSAGE FORM
     Route: 058
  12. ICATIBANT [Suspect]
     Active Substance: ICATIBANT ACETATE
     Dosage: 1 DOSAGE FORM
     Route: 058
  13. ICATIBANT [Suspect]
     Active Substance: ICATIBANT ACETATE
     Dosage: 30 MILLIGRAM
     Route: 065
  14. ICATIBANT [Suspect]
     Active Substance: ICATIBANT ACETATE
     Dosage: 30 MILLIGRAM
     Route: 065
  15. TAKHZYRO [Suspect]
     Active Substance: LANADELUMAB-FLYO
     Indication: Hereditary angioedema
     Dosage: 300 MILLIGRAM, Q2WEEKS
     Route: 058
     Dates: start: 20211120
  16. TAKHZYRO [Suspect]
     Active Substance: LANADELUMAB-FLYO
     Dosage: 300 MILLIGRAM, MONTHLY
     Route: 058
  17. LEVOTHYROXINE [Concomitant]
     Active Substance: LEVOTHYROXINE\LEVOTHYROXINE SODIUM
     Indication: Hypothyroidism
     Dosage: 50 MICROGRAM, QD
     Route: 048
  18. LEVOTHYROXINE [Concomitant]
     Active Substance: LEVOTHYROXINE\LEVOTHYROXINE SODIUM
     Dosage: 75 MICROGRAM, QD
     Route: 048
  19. DANAZOL [Concomitant]
     Active Substance: DANAZOL
     Dosage: UNK
     Route: 048

REACTIONS (49)
  - Uterine pain [Unknown]
  - Vaginal haemorrhage [Unknown]
  - Mobility decreased [Not Recovered/Not Resolved]
  - Fatigue [Not Recovered/Not Resolved]
  - Somnolence [Not Recovered/Not Resolved]
  - Thirst [Not Recovered/Not Resolved]
  - Erythema [Not Recovered/Not Resolved]
  - Dizziness [Not Recovered/Not Resolved]
  - Puncture site pain [Not Recovered/Not Resolved]
  - Oral discomfort [Not Recovered/Not Resolved]
  - Tremor [Not Recovered/Not Resolved]
  - Anaemia [Unknown]
  - Inflammation [Unknown]
  - Weight increased [Unknown]
  - Fall [Unknown]
  - Body height decreased [Unknown]
  - Spinal column injury [Unknown]
  - Ear pain [Not Recovered/Not Resolved]
  - Blood pressure increased [Not Recovered/Not Resolved]
  - Hypertension [Unknown]
  - Cough [Recovering/Resolving]
  - Acne [Not Recovered/Not Resolved]
  - Arthralgia [Not Recovered/Not Resolved]
  - Weight decreased [Unknown]
  - Pain [Not Recovered/Not Resolved]
  - Allergy to chemicals [Not Recovered/Not Resolved]
  - Application site bruise [Not Recovered/Not Resolved]
  - Skin induration [Not Recovered/Not Resolved]
  - Influenza [Not Recovered/Not Resolved]
  - Malaise [Not Recovered/Not Resolved]
  - Heavy menstrual bleeding [Recovered/Resolved]
  - Adnexa uteri pain [Not Recovered/Not Resolved]
  - Vulvovaginal exfoliation [Not Recovered/Not Resolved]
  - Gait disturbance [Not Recovered/Not Resolved]
  - Migraine [Not Recovered/Not Resolved]
  - Blood pressure decreased [Unknown]
  - Stress [Unknown]
  - Abdominal pain lower [Unknown]
  - Hereditary angioedema [Recovered/Resolved]
  - Injection site haemorrhage [Not Recovered/Not Resolved]
  - Nasal congestion [Recovering/Resolving]
  - Burning sensation [Not Recovered/Not Resolved]
  - Headache [Not Recovered/Not Resolved]
  - Pruritus [Not Recovered/Not Resolved]
  - Pyrexia [Recovering/Resolving]
  - Product availability issue [Unknown]
  - Product dose omission issue [Unknown]
  - Medication error [Unknown]
  - Inappropriate schedule of product administration [Unknown]

NARRATIVE: CASE EVENT DATE: 20200106
